FAERS Safety Report 7483099-8 (Version None)
Quarter: 2011Q2

REPORT INFORMATION
  Report Type: 
  Country: None (occurrence: None)
  Receive Date: 20110516
  Receipt Date: 20110509
  Transmission Date: 20111010
  Serious: Yes (Hospitalization, Other)
  Sender: FDA-Public Use
  Company Number: BE-ABBOTT-11P-013-0707569-00

PATIENT
  Sex: Female
  Weight: 64 kg

DRUGS (9)
  1. HUMIRA [Suspect]
     Indication: RHEUMATOID ARTHRITIS
     Dates: start: 20060401, end: 20101212
  2. SIMVASTATIN [Concomitant]
     Indication: PRODUCT USED FOR UNKNOWN INDICATION
     Dates: start: 20080901
  3. EUSAPRIM [Concomitant]
     Indication: PRODUCT USED FOR UNKNOWN INDICATION
     Dosage: 400MG+80MG /DAY
  4. MELPHALAN HYDROCHLORIDE [Concomitant]
     Indication: PRODUCT USED FOR UNKNOWN INDICATION
     Dosage: 69 MILLIGRAM DAILY
     Dates: start: 20110103, end: 20110109
  5. ZOVIRAX [Concomitant]
     Indication: PRODUCT USED FOR UNKNOWN INDICATION
  6. ASAFLOW [Concomitant]
     Indication: PRODUCT USED FOR UNKNOWN INDICATION
     Dosage: 80 MG DAILY
     Route: 048
     Dates: start: 20080701
  7. D-VITAL [Concomitant]
     Indication: PRODUCT USED FOR UNKNOWN INDICATION
     Route: 048
     Dates: start: 20060801
  8. FRAXIPARINE [Concomitant]
     Indication: PRODUCT USED FOR UNKNOWN INDICATION
     Dosage: 0.3 MILLILITER DAILY
  9. DIFLUCAN [Concomitant]
     Indication: PRODUCT USED FOR UNKNOWN INDICATION

REACTIONS (7)
  - LEFT VENTRICULAR HYPERTROPHY [None]
  - ABDOMINAL MASS [None]
  - TRICUSPID VALVE INCOMPETENCE [None]
  - OEDEMA PERIPHERAL [None]
  - RESPIRATORY TRACT INFECTION [None]
  - HODGKIN'S DISEASE [None]
  - BUNDLE BRANCH BLOCK LEFT [None]
